FAERS Safety Report 9022057 (Version 2)
Quarter: 2013Q1

REPORT INFORMATION
  Report Type: Spontaneous
  Country: IN (occurrence: IN)
  Receive Date: 20130118
  Receipt Date: 20130328
  Transmission Date: 20140127
  Serious: Yes (Death, Hospitalization)
  Sender: FDA-Public Use
  Company Number: IN-SANOFI-AVENTIS-2013SA003201

PATIENT
  Age: 50 Year
  Sex: Male

DRUGS (1)
  1. LEFLUNOMIDE [Suspect]
     Indication: ARTHRALGIA
     Route: 048

REACTIONS (19)
  - Drug reaction with eosinophilia and systemic symptoms [Fatal]
  - Pyrexia [Fatal]
  - Eosinophilia [Fatal]
  - Leukocytosis [Fatal]
  - Thrombocytopenia [Fatal]
  - Diarrhoea [Fatal]
  - Erythema [Fatal]
  - Mucosal inflammation [Fatal]
  - Renal failure acute [Fatal]
  - Oliguria [Fatal]
  - Tubulointerstitial nephritis [Fatal]
  - Vasculitis [Fatal]
  - Jaundice [Fatal]
  - Hepatitis [Fatal]
  - Cough [Fatal]
  - Abdominal pain upper [Fatal]
  - Duodenal ulcer [Fatal]
  - Skin exfoliation [Fatal]
  - Peritonitis [Fatal]
